FAERS Safety Report 10030813 (Version 2)
Quarter: 2014Q1

REPORT INFORMATION
  Report Type: Spontaneous
  Country: US (occurrence: US)
  Receive Date: 20140323
  Receipt Date: 20140323
  Transmission Date: 20141002
  Serious: No
  Sender: FDA-Public Use
  Company Number: US-ALLERGAN-1313895US

PATIENT
  Age: 52 Year
  Sex: Female

DRUGS (1)
  1. LATISSE 0.03% [Suspect]
     Indication: GROWTH OF EYELASHES
     Dosage: 2 GTT, QHS
     Route: 061
     Dates: start: 20130903, end: 20130904

REACTIONS (8)
  - Blepharal pigmentation [Recovered/Resolved]
  - Blepharal pigmentation [Recovered/Resolved]
  - Eyelid sensory disorder [Recovered/Resolved]
  - Eyelid sensory disorder [Recovered/Resolved]
  - Ocular vascular disorder [Recovered/Resolved]
  - Headache [Recovered/Resolved]
  - Eyelid oedema [Recovered/Resolved]
  - Vision blurred [Recovered/Resolved]
